FAERS Safety Report 16771776 (Version 1)
Quarter: 2019Q4

REPORT INFORMATION
  Report Type: Spontaneous
  Country: US (occurrence: US)
  Receive Date: 20190903
  Receipt Date: 20190903
  Transmission Date: 20200122
  Serious: No
  Sender: FDA-Public Use
  Company Number: None

PATIENT
  Age: 75 Year
  Sex: Male
  Weight: 97.2 kg

DRUGS (2)
  1. ALTACHLORE SODIUM CHLORIDE HYPERTONICITY [Suspect]
     Active Substance: SODIUM CHLORIDE
     Indication: CORNEAL EROSION
     Dosage: ?          QUANTITY:3.5 GRAMS;?
     Route: 047
     Dates: start: 20190826, end: 20190830
  2. ALTACHLORE SODIUM CHLORIDE HYPERTONICITY [Suspect]
     Active Substance: SODIUM CHLORIDE
     Indication: DRY EYE
     Dosage: ?          QUANTITY:3.5 GRAMS;?
     Route: 047
     Dates: start: 20190826, end: 20190830

REACTIONS (3)
  - Instillation site infection [None]
  - Recalled product administered [None]
  - Photoelectric conjunctivitis [None]

NARRATIVE: CASE EVENT DATE: 20190830
